FAERS Safety Report 9060939 (Version 4)
Quarter: 2013Q4

REPORT INFORMATION
  Report Type: Spontaneous
  Country: TR (occurrence: TR)
  Receive Date: 20130213
  Receipt Date: 20131114
  Transmission Date: 20140711
  Serious: Yes (Hospitalization, Other)
  Sender: FDA-Public Use
  Company Number: TR-AMGEN-TURSP2013008831

PATIENT
  Age: 21 Year
  Sex: Male

DRUGS (5)
  1. ENBREL [Suspect]
     Indication: RHEUMATOID ARTHRITIS
     Dosage: 50 MG, ONCE IN 15 DAYS
     Route: 058
     Dates: start: 201202, end: 20121225
  2. ENBREL [Suspect]
     Dosage: 50 MG, QMO
     Route: 058
     Dates: start: 20130120
  3. ENBREL [Suspect]
     Dosage: 50 MG, Q2MO
     Route: 058
     Dates: end: 201306
  4. ARAVA [Concomitant]
     Indication: RHEUMATOID ARTHRITIS
     Dosage: 1 DF, QD
     Route: 048
     Dates: start: 2010, end: 20121225
  5. DELTACORTRIL                       /00016201/ [Concomitant]
     Indication: RHEUMATOID ARTHRITIS
     Dosage: 5 MG, QD
     Route: 048
     Dates: start: 2009, end: 20121225

REACTIONS (5)
  - Gastric haemorrhage [Recovered/Resolved]
  - Pancreatitis [Recovered/Resolved]
  - Fear [Not Recovered/Not Resolved]
  - Pain [Recovered/Resolved]
  - Musculoskeletal stiffness [Recovered/Resolved]
